FAERS Safety Report 10048770 (Version 1)
Quarter: 2014Q1

REPORT INFORMATION
  Report Type: Spontaneous
  Country: US (occurrence: US)
  Receive Date: 20140331
  Receipt Date: 20140331
  Transmission Date: 20141002
  Serious: Yes (Other)
  Sender: FDA-Public Use
  Company Number: US-JNJFOC-20140316408

PATIENT
  Sex: Male

DRUGS (4)
  1. INVOKANA [Suspect]
     Indication: PRODUCT USED FOR UNKNOWN INDICATION
     Route: 048
  2. METFORMIN [Concomitant]
  3. GLIMEPIRIDE [Concomitant]
  4. LIPITOR [Concomitant]

REACTIONS (3)
  - Weight decreased [Unknown]
  - Prostatic specific antigen increased [Unknown]
  - Drug ineffective [Unknown]
